FAERS Safety Report 7451247-1 (Version None)
Quarter: 2011Q2

REPORT INFORMATION
  Report Type: 
  Country: None (occurrence: None)
  Receive Date: 20110502
  Receipt Date: 20110426
  Transmission Date: 20111010
  Serious: Yes (Other)
  Sender: FDA-Public Use
  Company Number: PHHY2010US39050

PATIENT
  Sex: Female

DRUGS (1)
  1. RECLAST [Suspect]
     Dosage: UNK

REACTIONS (8)
  - INJECTION SITE PAIN [None]
  - CHEST PAIN [None]
  - DIARRHOEA [None]
  - PAIN [None]
  - INFLUENZA LIKE ILLNESS [None]
  - PNEUMONIA [None]
  - MALAISE [None]
  - VOMITING [None]
